FAERS Safety Report 9783887 (Version 1)
Quarter: 2013Q4

REPORT INFORMATION
  Report Type: Spontaneous
  Country: GB (occurrence: GB)
  Receive Date: 20131226
  Receipt Date: 20131226
  Transmission Date: 20140711
  Serious: Yes (Disabling)
  Sender: FDA-Public Use
  Company Number: GB-TEVA-451543ISR

PATIENT
  Age: 58 Year
  Sex: Female
  Weight: 102 kg

DRUGS (9)
  1. BISOPROLOL [Suspect]
     Indication: CARDIOMEGALY
     Route: 048
     Dates: start: 2013
  2. LEVOTHYROXINE [Concomitant]
  3. OMEPRAZOLE [Concomitant]
  4. ATORVASTATIN [Concomitant]
  5. RAMIPRIL [Concomitant]
  6. ASPIRIN [Concomitant]
  7. AMLODIPINE [Concomitant]
  8. FERROUS FUMARATE [Concomitant]
  9. HUMULIN [Concomitant]

REACTIONS (5)
  - Hypersensitivity [Not Recovered/Not Resolved]
  - Liver disorder [Not Recovered/Not Resolved]
  - Rash [Not Recovered/Not Resolved]
  - Back pain [Unknown]
  - Urinary tract infection [Unknown]
